FAERS Safety Report 10639224 (Version 1)
Quarter: 2014Q4

REPORT INFORMATION
  Report Type: Report from Study
  Country: US (occurrence: US)
  Receive Date: 20141208
  Receipt Date: 20141208
  Transmission Date: 20150529
  Serious: Yes (Other)
  Sender: FDA-Public Use
  Company Number: PHEH2014US023563

PATIENT
  Sex: Female

DRUGS (2)
  1. GLEEVEC [Suspect]
     Active Substance: IMATINIB MESYLATE
     Indication: MASTOCYTOSIS
     Dosage: 100 MG, QD
     Route: 048
  2. GLEEVEC [Suspect]
     Active Substance: IMATINIB MESYLATE
     Indication: OFF LABEL USE

REACTIONS (19)
  - Pulmonary hypertension [Unknown]
  - Oral candidiasis [Recovered/Resolved]
  - Abdominal distension [Unknown]
  - Abdominal pain upper [Unknown]
  - Weight fluctuation [Unknown]
  - Psoriasis [Unknown]
  - Atrial fibrillation [Unknown]
  - Headache [Unknown]
  - Nephrolithiasis [Unknown]
  - Tryptase increased [Unknown]
  - Arthralgia [Unknown]
  - Intervertebral disc degeneration [Unknown]
  - Neuropathy peripheral [Unknown]
  - Pruritus [Unknown]
  - Colitis [Unknown]
  - Early satiety [Unknown]
  - Thrombosis [Unknown]
  - Fatigue [Unknown]
  - Diarrhoea [Unknown]

NARRATIVE: CASE EVENT DATE: 2005
